FAERS Safety Report 7792522-0 (Version None)
Quarter: 2011Q4

REPORT INFORMATION
  Report Type: 
  Country: None (occurrence: None)
  Receive Date: 20111003
  Receipt Date: 20110922
  Transmission Date: 20120403
  Serious: Yes (Hospitalization, Other)
  Sender: FDA-Public Use
  Company Number: US-CELGENEUS-163-21880-11081673

PATIENT
  Sex: Female

DRUGS (34)
  1. REVLIMID [Suspect]
     Indication: MULTIPLE MYELOMA
     Dosage: 25 MILLIGRAM
     Route: 048
     Dates: start: 20110420, end: 20110512
  2. ARANESP [Concomitant]
     Dosage: 200 MICROGRAM
     Route: 065
     Dates: start: 20110614
  3. BACLOFEN [Concomitant]
     Dosage: 10 MILLIGRAM
     Route: 048
     Dates: start: 20110714
  4. GLUCOPHAG [Concomitant]
     Dosage: 500 MILLIGRAM
     Route: 048
  5. LIPITOR [Concomitant]
     Dosage: 10 MILLIGRAM
     Route: 048
  6. NEURONTIN [Concomitant]
     Dosage: 300 MILLIGRAM
     Route: 048
  7. ARANESP [Concomitant]
     Dosage: 500 MICROGRAM
     Route: 065
     Dates: start: 20110317, end: 20110509
  8. CARAFATE [Concomitant]
     Dosage: 1 GRAM
     Route: 048
     Dates: start: 20110714
  9. IRON [Concomitant]
     Dosage: 325 MILLIGRAM
     Route: 048
  10. MAGNESIUM [Concomitant]
     Dosage: 200 MILLIGRAM
     Route: 048
  11. DECADRON [Concomitant]
     Indication: MULTIPLE MYELOMA
     Dosage: 40 MILLIGRAM
     Route: 065
     Dates: start: 20110420, end: 20110512
  12. IPILIMUMAB [Concomitant]
     Route: 065
     Dates: start: 20110714, end: 20110915
  13. CIPROFLOXACIN [Concomitant]
     Dosage: 500 MILLIGRAM
     Route: 048
     Dates: start: 20110714
  14. ZOMETA [Concomitant]
     Route: 065
     Dates: start: 20110614
  15. FENTANYL [Concomitant]
     Dosage: 25 MICROGRAM
     Route: 061
  16. PERCOCET [Concomitant]
     Indication: PAIN
     Dosage: 5MG-325MG
     Route: 048
  17. TRENTAL [Concomitant]
     Dosage: 400 MILLIGRAM
     Route: 048
     Dates: start: 20110714
  18. REVLIMID [Suspect]
     Dosage: 10 MILLIGRAM
     Route: 048
     Dates: start: 20110524, end: 20110809
  19. MAGNESIUM HYDROXIDE TAB [Concomitant]
     Route: 065
     Dates: start: 20110501
  20. ARANESP [Concomitant]
     Dosage: 200 MICROGRAM
     Route: 065
     Dates: start: 20110809
  21. ARANESP [Concomitant]
     Dosage: 500 MICROGRAM
     Route: 065
     Dates: start: 20110217, end: 20110217
  22. PACERONE [Concomitant]
     Dosage: 200 MILLIGRAM
     Route: 048
     Dates: start: 20110714
  23. PERI-COLACE [Concomitant]
     Dosage: 8.6MG-50MG
     Route: 048
     Dates: start: 20110714
  24. SINGULAIR [Concomitant]
     Dosage: 10 MILLIGRAM
     Route: 048
     Dates: start: 20110714
  25. LORTAB [Concomitant]
     Dosage: 500 MILLIGRAM
     Route: 048
     Dates: start: 20110714
  26. PEPCID [Concomitant]
     Dosage: 20 MILLIGRAM
     Route: 048
     Dates: start: 20110714
  27. TRAMADOL HCL [Concomitant]
     Dosage: 50 MILLIGRAM
     Route: 048
     Dates: start: 20110714
  28. LISINOPRIL [Concomitant]
     Dosage: 20 MILLIGRAM
     Route: 048
  29. LASIX [Concomitant]
     Dosage: 40 MILLIGRAM
     Route: 048
     Dates: start: 20110714
  30. NEULASTA [Concomitant]
     Route: 065
     Dates: start: 20110224, end: 20110224
  31. COUMADIN [Concomitant]
     Dosage: 2 MILLIGRAM
     Route: 048
  32. NEXIUM [Concomitant]
     Dosage: 40 MILLIGRAM
     Route: 048
     Dates: start: 20110501
  33. POTASSIUM CHLORIDE [Concomitant]
     Dosage: 20 MILLIEQUIVALENTS
     Route: 048
     Dates: start: 20110714
  34. ZOMETA [Concomitant]
     Route: 065
     Dates: start: 20101109, end: 20110511

REACTIONS (2)
  - PANCYTOPENIA [None]
  - MALIGNANT MELANOMA [None]
